FAERS Safety Report 21109858 (Version 3)
Quarter: 2022Q3

REPORT INFORMATION
  Report Type: Spontaneous
  Country: FR (occurrence: FR)
  Receive Date: 20220721
  Receipt Date: 20220729
  Transmission Date: 20221027
  Serious: Yes (Life-Threatening, Hospitalization, Other)
  Sender: FDA-Public Use
  Company Number: FR-AUROBINDO-AUR-APL-2022-027657

PATIENT
  Age: 25 Year
  Sex: Female

DRUGS (13)
  1. TRAMADOL [Suspect]
     Active Substance: TRAMADOL
     Indication: Pain
     Dosage: 2000 MILLIGRAM, ONCE A DAY ( (MAXIMUM OF 2 TABLETS PER DAY))
     Route: 065
     Dates: start: 2018
  2. TRAMADOL [Suspect]
     Active Substance: TRAMADOL
     Indication: Intervertebral disc protrusion
     Dosage: 500 MILLIGRAM, ONCE A DAY
     Route: 065
     Dates: start: 2018
  3. TRAMADOL [Suspect]
     Active Substance: TRAMADOL
     Dosage: 200 MILLIGRAM, ONCE A DAY
     Route: 065
     Dates: start: 2018
  4. TRAMADOL [Suspect]
     Active Substance: TRAMADOL
     Dosage: 100 MILLIGRAM, AS NECESSARY (MAXIMUM OF 2 TABLETS PER DAY SUSTAINED RELEASE )
     Route: 065
     Dates: start: 2018, end: 2018
  5. TRAMADOL [Suspect]
     Active Substance: TRAMADOL
     Dosage: 1000 MILLIGRAM, ONCE A DAY
     Route: 065
     Dates: start: 2019, end: 2019
  6. TRAMADOL [Suspect]
     Active Substance: TRAMADOL
     Dosage: 2000 MILLIGRAM, ONCE A DAY
     Route: 065
     Dates: start: 2019, end: 202003
  7. TRAMADOL [Suspect]
     Active Substance: TRAMADOL
     Indication: Spinal pain
     Dosage: 1000 MILLIGRAM, ONCE A DAY ((THE MAXIMUM DOSE IS 450 MG PER DAY)
     Route: 065
     Dates: start: 2019
  8. TRAMADOL [Suspect]
     Active Substance: TRAMADOL
     Dosage: 2000 MILLIGRAM, ONCE A DAY
     Route: 065
     Dates: start: 2019
  9. LAMOTRIGINE [Concomitant]
     Active Substance: LAMOTRIGINE
     Indication: Generalised tonic-clonic seizure
     Dosage: UNK
     Route: 065
  10. PAROXETINE [Concomitant]
     Active Substance: PAROXETINE
     Indication: Major depression
     Dosage: 20 MILLIGRAM, ONCE A DAY
     Route: 065
  11. METHADONE [Concomitant]
     Active Substance: METHADONE HYDROCHLORIDE
     Indication: Product used for unknown indication
     Dosage: 20 MILLIGRAM, ONCE A DAY (FOR THE FIRST 3 DAYS)
     Route: 065
  12. METHADONE [Concomitant]
     Active Substance: METHADONE HYDROCHLORIDE
     Dosage: 5 MILLIGRAM (EACH 3 DAYS)
     Route: 065
  13. QUETIAPINE [Concomitant]
     Active Substance: QUETIAPINE
     Indication: Product used for unknown indication
     Dosage: 150 MILLIGRAM, ONCE A DAY
     Route: 065

REACTIONS (15)
  - Suicide attempt [Unknown]
  - Suicidal ideation [Unknown]
  - Generalised tonic-clonic seizure [Unknown]
  - Impatience [Recovered/Resolved]
  - Anxiety [Recovered/Resolved]
  - Diarrhoea [Recovered/Resolved]
  - Major depression [Unknown]
  - Chills [Recovered/Resolved]
  - Drug dependence [Unknown]
  - Intentional product misuse [Recovered/Resolved]
  - Intentional overdose [Unknown]
  - Withdrawal syndrome [Recovered/Resolved]
  - Drug withdrawal syndrome [Recovered/Resolved]
  - Drug diversion [Unknown]
  - Prescription form tampering [Unknown]

NARRATIVE: CASE EVENT DATE: 20180101
